FAERS Safety Report 19574949 (Version 1)
Quarter: 2021Q3

REPORT INFORMATION
  Report Type: Spontaneous
  Country: JP (occurrence: JP)
  Receive Date: 20210719
  Receipt Date: 20210719
  Transmission Date: 20211014
  Serious: Yes (Hospitalization, Other)
  Sender: FDA-Public Use
  Company Number: JP-ABBVIE-21K-087-3985659-00

PATIENT
  Age: 13 Year
  Sex: Male
  Weight: 32.6 kg

DRUGS (8)
  1. VALPROATE SODIUM. [Suspect]
     Active Substance: VALPROATE SODIUM
     Indication: SEVERE MYOCLONIC EPILEPSY OF INFANCY
     Dosage: FOR 3 YEARS MORE OVER
     Route: 051
  2. MIDAZOLAM. [Concomitant]
     Active Substance: MIDAZOLAM
     Indication: PRODUCT USED FOR UNKNOWN INDICATION
  3. VALERINA [VALERIANA OFFICINALIS ROOT] [Suspect]
     Active Substance: VALERIAN
     Indication: EPILEPSY
     Dosage: FOR 3 YEARS MOREOVER
     Route: 051
  4. MYSTAN [Suspect]
     Active Substance: CLOBAZAM
     Indication: EPILEPSY
     Dosage: FOR 3 YEARS MOREOVER
     Route: 051
  5. LEVETIRACETAM. [Suspect]
     Active Substance: LEVETIRACETAM
     Indication: EPILEPSY
     Dosage: FOR 3 YEARS MOREOVER
     Route: 065
  6. CLOBAZAM. [Suspect]
     Active Substance: CLOBAZAM
     Indication: EPILEPSY
     Route: 065
  7. DIACOMIT [Suspect]
     Active Substance: STIRIPENTOL
     Indication: SEVERE MYOCLONIC EPILEPSY OF INFANCY
     Dosage: FOR 3 YEARS MOREOVER
     Route: 051
  8. PROPOFOL. [Concomitant]
     Active Substance: PROPOFOL
     Indication: PRODUCT USED FOR UNKNOWN INDICATION

REACTIONS (3)
  - Gynaecomastia [Unknown]
  - Pneumonia aspiration [Recovered/Resolved]
  - Aspiration [Unknown]
